FAERS Safety Report 6461959-4 (Version None)
Quarter: 2009Q4

REPORT INFORMATION
  Report Type: 
  Country: None (occurrence: None)
  Receive Date: 20091130
  Receipt Date: 20091120
  Transmission Date: 20100525
  Serious: Yes (Other)
  Sender: FDA-Public Use
  Company Number: US-ROCHE-670347

PATIENT
  Sex: Female
  Weight: 62.6 kg

DRUGS (3)
  1. BONIVA [Suspect]
     Indication: OSTEOPENIA
     Route: 048
     Dates: start: 20080101, end: 20090101
  2. CALCIUM [Concomitant]
  3. VITAMINE D [Concomitant]

REACTIONS (1)
  - PARKINSON'S DISEASE [None]
